FAERS Safety Report 8421968-2 (Version None)
Quarter: 2012Q2

REPORT INFORMATION
  Report Type: 
  Country: None (occurrence: None)
  Receive Date: 20120608
  Receipt Date: 20120530
  Transmission Date: 20120825
  Serious: Yes (Hospitalization)
  Sender: FDA-Public Use
  Company Number: GB-SANOFI-AVENTIS-2012SA035959

PATIENT
  Age: 73 Year
  Sex: Male
  Weight: 93 kg

DRUGS (9)
  1. ZOLEDRONIC ACID [Suspect]
     Route: 042
     Dates: start: 20120312, end: 20120312
  2. ADCAL-D3 [Concomitant]
     Route: 048
     Dates: start: 20120312
  3. ZOLADEX [Suspect]
     Indication: PROSTATE CANCER
     Route: 058
     Dates: start: 20111206, end: 20111206
  4. DOCETAXEL [Suspect]
     Indication: PROSTATE CANCER
     Route: 042
     Dates: start: 20120312, end: 20120312
  5. ZOLEDRONIC ACID [Suspect]
     Indication: PROSTATE CANCER
     Route: 042
     Dates: end: 20120423
  6. ZOLADEX [Suspect]
     Route: 058
  7. PREDNISOLONE [Concomitant]
     Dosage: PREDNISOLONE 5MG BID DAILY FOR 21 DAYS.
     Route: 048
     Dates: start: 20120312
  8. DOCETAXEL [Suspect]
     Route: 042
     Dates: end: 20120423
  9. ZOLADEX [Suspect]
     Route: 058
     Dates: end: 20120326

REACTIONS (3)
  - HYPOXIA [None]
  - COUGH [None]
  - DYSPNOEA [None]
